FAERS Safety Report 10454227 (Version 2)
Quarter: 2014Q3

REPORT INFORMATION
  Report Type: Spontaneous
  Country: US (occurrence: US)
  Receive Date: 20140915
  Receipt Date: 20140918
  Transmission Date: 20150326
  Serious: No
  Sender: FDA-Public Use
  Company Number: US-GILEAD-2014-0114904

PATIENT
  Age: 56 Year
  Sex: Female

DRUGS (5)
  1. FUROSEMIDE. [Concomitant]
     Active Substance: FUROSEMIDE
  2. LETAIRIS [Suspect]
     Active Substance: AMBRISENTAN
     Dosage: 10 MG, UNK
     Dates: start: 20140805
  3. METOPROLOL [Concomitant]
     Active Substance: METOPROLOL
  4. LETAIRIS [Suspect]
     Active Substance: AMBRISENTAN
     Indication: PULMONARY HYPERTENSION
     Dosage: 10 MG, QD
     Route: 065
     Dates: start: 20140706, end: 20140906
  5. ADCIRCA [Concomitant]
     Active Substance: TADALAFIL

REACTIONS (4)
  - Depression [Unknown]
  - Pain [Unknown]
  - Fatigue [Unknown]
  - No therapeutic response [Unknown]

NARRATIVE: CASE EVENT DATE: 20140806
